FAERS Safety Report 25174281 (Version 1)
Quarter: 2025Q2

REPORT INFORMATION
  Report Type: Spontaneous
  Country: FR (occurrence: FR)
  Receive Date: 20250408
  Receipt Date: 20250408
  Transmission Date: 20250717
  Serious: Yes (Hospitalization)
  Sender: MYLAN
  Company Number: None

PATIENT
  Age: 25 Year
  Sex: Female
  Weight: 60 kg

DRUGS (4)
  1. ACETAMINOPHEN [Suspect]
     Active Substance: ACETAMINOPHEN
     Indication: Product used for unknown indication
     Dates: start: 20250213, end: 20250213
  2. LOXAPINE [Suspect]
     Active Substance: LOXAPINE
     Indication: Product used for unknown indication
     Dates: start: 20250213, end: 20250213
  3. TRIMEPRAZINE [Suspect]
     Active Substance: TRIMEPRAZINE
     Indication: Product used for unknown indication
     Dates: start: 20250213, end: 20250213
  4. DIAZEPAM [Suspect]
     Active Substance: DIAZEPAM
     Indication: Product used for unknown indication
     Dates: start: 20250213, end: 20250213

REACTIONS (4)
  - Hepatic cytolysis [Recovered/Resolved]
  - Altered state of consciousness [Recovered/Resolved]
  - Poisoning deliberate [Recovered/Resolved]
  - Intentional overdose [Unknown]

NARRATIVE: CASE EVENT DATE: 20250214
